FAERS Safety Report 24675950 (Version 5)
Quarter: 2025Q4

REPORT INFORMATION
  Report Type: Report from Study
  Country: CA (occurrence: CA)
  Receive Date: 20241128
  Receipt Date: 20251113
  Transmission Date: 20260119
  Serious: Yes (Other)
  Sender: SAMSUNG BIOEPIS
  Company Number: CA-SAMSUNG BIOEPIS-SB-2024-35278

PATIENT
  Age: 14 Year
  Sex: Male
  Weight: 62 kg

DRUGS (4)
  1. RENFLEXIS [Suspect]
     Active Substance: INFLIXIMAB-ABDA
     Indication: Colitis ulcerative
     Route: 042
     Dates: start: 20240502
  2. RENFLEXIS [Suspect]
     Active Substance: INFLIXIMAB-ABDA
     Route: 042
     Dates: start: 20240503
  3. RENFLEXIS [Suspect]
     Active Substance: INFLIXIMAB-ABDA
     Route: 042
     Dates: start: 20240503
  4. RENFLEXIS [Suspect]
     Active Substance: INFLIXIMAB-ABDA
     Route: 042
     Dates: start: 20240503

REACTIONS (8)
  - Diarrhoea haemorrhagic [Not Recovered/Not Resolved]
  - Pharyngitis streptococcal [Unknown]
  - Pyrexia [Not Recovered/Not Resolved]
  - Oropharyngeal pain [Not Recovered/Not Resolved]
  - Drug level abnormal [Unknown]
  - Drug level decreased [Unknown]
  - Faecal calprotectin increased [Unknown]
  - Product use issue [Unknown]

NARRATIVE: CASE EVENT DATE: 20241126
